FAERS Safety Report 25197208 (Version 1)
Quarter: 2025Q2

REPORT INFORMATION
  Report Type: Spontaneous
  Country: PT (occurrence: PT)
  Receive Date: 20250415
  Receipt Date: 20250415
  Transmission Date: 20250717
  Serious: Yes (Other)
  Sender: AUROBINDO
  Company Number: PT-INFARMED-F202503-856

PATIENT
  Age: 58 Year
  Sex: Female
  Weight: 70 kg

DRUGS (1)
  1. ANASTROZOLE [Suspect]
     Active Substance: ANASTROZOLE
     Indication: Breast neoplasm
     Dosage: 1 MILLIGRAM, ONCE A DAY
     Route: 048
     Dates: start: 20250106, end: 20250224

REACTIONS (4)
  - Myalgia [Recovering/Resolving]
  - Muscle spasms [Recovering/Resolving]
  - Blood pressure abnormal [Recovering/Resolving]
  - Heart rate abnormal [Recovering/Resolving]

NARRATIVE: CASE EVENT DATE: 20250106
